FAERS Safety Report 9777874 (Version 1)
Quarter: 2013Q4

REPORT INFORMATION
  Report Type: Spontaneous
  Country: AU (occurrence: AU)
  Receive Date: 20131223
  Receipt Date: 20131223
  Transmission Date: 20140711
  Serious: No
  Sender: FDA-Public Use
  Company Number: AU-009507513-1312AUS006934

PATIENT
  Sex: Female

DRUGS (5)
  1. SAPHRIS [Suspect]
     Dosage: 10 MG, WAFER
     Route: 064
     Dates: start: 20111206, end: 20120814
  2. OLANZAPINE [Suspect]
     Dosage: 10 MG, UNK
     Route: 048
     Dates: start: 20120515
  3. RISPERIDONE [Suspect]
     Dosage: 2 MG, UNK
     Route: 048
  4. DIAZEPAM [Concomitant]
     Dosage: UNK
     Route: 048
  5. VITAMINS (UNSPECIFIED) [Concomitant]
     Dosage: UNK

REACTIONS (1)
  - Exposure during pregnancy [Recovered/Resolved]
